FAERS Safety Report 7430967-9 (Version None)
Quarter: 2011Q2

REPORT INFORMATION
  Report Type: 
  Country: None (occurrence: None)
  Receive Date: 20110421
  Receipt Date: 20110413
  Transmission Date: 20111010
  Serious: Yes (Other)
  Sender: FDA-Public Use
  Company Number: PHHY2011GB30662

PATIENT
  Sex: Female

DRUGS (3)
  1. AVASTIN [Suspect]
     Dosage: UNK UKN, UNK
  2. OXALIPLATIN [Suspect]
     Dosage: UNK UKN, UNK
  3. XELODA [Suspect]
     Dosage: UNK UKN, UNK

REACTIONS (1)
  - CARDIAC DISORDER [None]
